FAERS Safety Report 4413546-7 (Version None)
Quarter: 2004Q3

REPORT INFORMATION
  Report Type: 
  Country: None (occurrence: None)
  Receive Date: 20040729
  Receipt Date: 20040716
  Transmission Date: 20050211
  Serious: Yes (Life-Threatening, Other)
  Sender: FDA-Public Use
  Company Number: 206850

PATIENT
  Age: 50 Year
  Sex: Female
  Weight: 65 kg

DRUGS (10)
  1. MABTHERA        (RITUXIMAB) [Suspect]
     Indication: RHEUMATOID ARTHRITIS
     Dosage: 1 G, INTRAVENOUS
     Route: 042
     Dates: start: 20030701, end: 20030701
  2. MABTHERA        (RITUXIMAB) [Suspect]
     Indication: RHEUMATOID ARTHRITIS
     Dosage: 1 G, INTRAVENOUS
     Route: 042
     Dates: start: 20040201, end: 20040201
  3. METHOTREXATE [Suspect]
     Indication: RHEUMATOID ARTHRITIS
  4. KINERET [Suspect]
     Indication: RHEUMATOID ARTHRITIS
  5. REMICADE [Suspect]
     Indication: RHEUMATOID ARTHRITIS
  6. NICOTINE [Concomitant]
  7. PREDNISOLONE [Concomitant]
  8. ACETAMINOPHEN [Concomitant]
  9. PIRITON   (CHLORPHENIRAMINE MALEATE) [Concomitant]
  10. MORPHINE SULFATE [Concomitant]

REACTIONS (3)
  - ASCITES [None]
  - OVARIAN CANCER METASTATIC [None]
  - PLEURAL EFFUSION [None]
